FAERS Safety Report 16849263 (Version 1)
Quarter: 2019Q3

REPORT INFORMATION
  Report Type: Report from Study
  Country: US (occurrence: US)
  Receive Date: 20190925
  Receipt Date: 20190925
  Transmission Date: 20191005
  Serious: Yes (Other)
  Sender: FDA-Public Use
  Company Number: US-ROCHE-2411801

PATIENT
  Sex: Female

DRUGS (2)
  1. NUTROPIN [Suspect]
     Active Substance: SOMATROPIN
     Indication: HYPOPITUITARISM
     Dosage: 0.4 MG
     Route: 058
  2. NUTROPIN [Suspect]
     Active Substance: SOMATROPIN
     Dosage: DAILY
     Route: 058

REACTIONS (1)
  - Brain neoplasm [Unknown]
